FAERS Safety Report 7547533-7 (Version None)
Quarter: 2011Q2

REPORT INFORMATION
  Report Type: 
  Country: None (occurrence: None)
  Receive Date: 20110614
  Receipt Date: 20110608
  Transmission Date: 20111010
  Serious: No
  Sender: FDA-Public Use
  Company Number: US-PFIZER INC-2011126268

PATIENT
  Sex: Female
  Weight: 53.515 kg

DRUGS (2)
  1. LUNESTA [Concomitant]
     Indication: INSOMNIA
     Dosage: 2 MG,DAILY
  2. ADVIL LIQUI-GELS [Suspect]
     Indication: PROCEDURAL PAIN
     Dosage: UNK

REACTIONS (4)
  - INTENTIONAL OVERDOSE [None]
  - ABDOMINAL PAIN UPPER [None]
  - ABDOMINAL DISTENSION [None]
  - ABDOMINAL DISCOMFORT [None]
